FAERS Safety Report 11084509 (Version 2)
Quarter: 2015Q2

REPORT INFORMATION
  Report Type: Spontaneous
  Country: US (occurrence: US)
  Receive Date: 20150503
  Receipt Date: 20150525
  Transmission Date: 20150821
  Serious: Yes (Other)
  Sender: FDA-Public Use
  Company Number: US-JNJFOC-20150321060

PATIENT
  Age: 42 Year
  Sex: Female
  Weight: 80.74 kg

DRUGS (4)
  1. XARELTO [Suspect]
     Active Substance: RIVAROXABAN
     Indication: THROMBOSIS
     Route: 048
     Dates: start: 20141204, end: 20150321
  2. IRON [Concomitant]
     Active Substance: IRON
     Indication: BLOOD IRON DECREASED
     Route: 065
     Dates: start: 20150315
  3. VITAMIN C [Concomitant]
     Active Substance: ASCORBIC ACID
     Route: 065
     Dates: start: 20150315
  4. B VITAMIN COMPLEX [Concomitant]
     Route: 065
     Dates: start: 20150315

REACTIONS (3)
  - Amenorrhoea [Recovered/Resolved]
  - Lethargy [Unknown]
  - Menorrhagia [Recovered/Resolved]

NARRATIVE: CASE EVENT DATE: 201501
